FAERS Safety Report 11419900 (Version 1)
Quarter: 2015Q3

REPORT INFORMATION
  Report Type: Spontaneous
  Country: CN (occurrence: CN)
  Receive Date: 20150826
  Receipt Date: 20150826
  Transmission Date: 20151125
  Serious: Yes (Other)
  Sender: FDA-Public Use
  Company Number: CN-JNJFOC-20150816191

PATIENT
  Age: 18 Year
  Sex: Male

DRUGS (4)
  1. TOPAMAX [Suspect]
     Active Substance: TOPIRAMATE
     Indication: STATUS EPILEPTICUS
     Route: 048
  2. TOPAMAX [Suspect]
     Active Substance: TOPIRAMATE
     Indication: STATUS EPILEPTICUS
     Route: 048
     Dates: start: 20140214, end: 20140323
  3. TOPAMAX [Suspect]
     Active Substance: TOPIRAMATE
     Indication: STATUS EPILEPTICUS
     Route: 048
     Dates: start: 20140208
  4. TOPAMAX [Suspect]
     Active Substance: TOPIRAMATE
     Indication: STATUS EPILEPTICUS
     Route: 048
     Dates: start: 20131228

REACTIONS (3)
  - Confusional state [Recovering/Resolving]
  - Altered state of consciousness [Recovering/Resolving]
  - Tic [Recovered/Resolved]

NARRATIVE: CASE EVENT DATE: 20140208
